FAERS Safety Report 25170502 (Version 3)
Quarter: 2025Q2

REPORT INFORMATION
  Report Type: Report from Study
  Country: US (occurrence: US)
  Receive Date: 20250408
  Receipt Date: 20250528
  Transmission Date: 20250716
  Serious: Yes (Other)
  Sender: ACADIA PHARMACEUTICALS
  Company Number: US-ACADIA PHARMACEUTICALS INC.-ACA-2025-PIM-003852

PATIENT
  Sex: Male

DRUGS (9)
  1. NUPLAZID [Suspect]
     Active Substance: PIMAVANSERIN TARTRATE
     Indication: Parkinson^s disease psychosis
     Dosage: STARTED IN 2025, 34 MILLIGRAM, QD
     Route: 048
     Dates: end: 20250514
  2. FOLIC ACID [Concomitant]
     Active Substance: FOLIC ACID
  3. VITAMINS NOS [Concomitant]
     Active Substance: VITAMINS
  4. VITAMIN D3 [Concomitant]
     Active Substance: CHOLECALCIFEROL
  5. CYANOCOBALAMIN [Concomitant]
     Active Substance: CYANOCOBALAMIN
  6. ASPIRIN [Concomitant]
     Active Substance: ASPIRIN
  7. MAGNESIUM CITRATE [Concomitant]
     Active Substance: MAGNESIUM CITRATE
  8. REPATHA [Concomitant]
     Active Substance: EVOLOCUMAB
  9. SULFASALAZINE [Concomitant]
     Active Substance: SULFASALAZINE

REACTIONS (4)
  - Hallucination [Not Recovered/Not Resolved]
  - Delusion [Not Recovered/Not Resolved]
  - Paranoia [Not Recovered/Not Resolved]
  - Drug ineffective [Not Recovered/Not Resolved]
